FAERS Safety Report 4387762-7 (Version None)
Quarter: 2004Q2

REPORT INFORMATION
  Report Type: 
  Country: None (occurrence: None)
  Receive Date: 20040630
  Receipt Date: 20040628
  Transmission Date: 20050107
  Serious: Yes (Other)
  Sender: FDA-Public Use
  Company Number: GB-ROCHE-372325

PATIENT
  Age: 62 Year
  Sex: Male
  Weight: 88 kg

DRUGS (1)
  1. NAPROXEN [Suspect]
     Indication: BURSITIS
     Route: 048
     Dates: start: 20040612, end: 20040614

REACTIONS (3)
  - DIZZINESS [None]
  - JOINT SWELLING [None]
  - ROAD TRAFFIC ACCIDENT [None]
